FAERS Safety Report 4761424-6 (Version None)
Quarter: 2005Q3

REPORT INFORMATION
  Report Type: 
  Country: None (occurrence: None)
  Receive Date: 20050901
  Receipt Date: 20050901
  Transmission Date: 20060218
  Serious: Yes (Hospitalization)
  Sender: FDA-Public Use
  Company Number: None

PATIENT
  Age: 44 Year
  Sex: Male
  Weight: 76.66 kg

DRUGS (6)
  1. CLOZAPINE [Suspect]
     Indication: SCHIZOAFFECTIVE DISORDER
     Dosage: 12.5MG TWICE DAILY PO
     Route: 048
     Dates: start: 20050817, end: 20050818
  2. CLOZAPINE [Concomitant]
  3. LITIUM [Concomitant]
  4. LEVOTHYROXINE [Concomitant]
  5. PROPRANOLOL [Concomitant]
  6. HALOPERIDOL [Concomitant]

REACTIONS (2)
  - PYREXIA [None]
  - URINARY TRACT DISORDER [None]
